FAERS Safety Report 5169113-3 (Version None)
Quarter: 2006Q4

REPORT INFORMATION
  Report Type: 
  Country: None (occurrence: None)
  Receive Date: 20061201
  Receipt Date: 20061120
  Transmission Date: 20070319
  Serious: Yes (Hospitalization)
  Sender: FDA-Public Use
  Company Number: 2006BI016972

PATIENT
  Age: 65 Year
  Sex: Female
  Weight: 61.2356 kg

DRUGS (1)
  1. AVONEX [Suspect]
     Indication: MULTIPLE SCLEROSIS
     Dosage: 30 UG; QW; IM
     Route: 030
     Dates: start: 20050101

REACTIONS (8)
  - ABDOMINAL TENDERNESS [None]
  - ASTHENIA [None]
  - CHOLELITHIASIS [None]
  - GASTRIC DILATATION [None]
  - MEMORY IMPAIRMENT [None]
  - NIGHTMARE [None]
  - PROCEDURAL PAIN [None]
  - TREMOR [None]
